FAERS Safety Report 7954880-3 (Version None)
Quarter: 2011Q4

REPORT INFORMATION
  Report Type: 
  Country: None (occurrence: None)
  Receive Date: 20111202
  Receipt Date: 20111123
  Transmission Date: 20120403
  Serious: Yes (Hospitalization)
  Sender: FDA-Public Use
  Company Number: US-MERCK-1102USA02323

PATIENT
  Age: 56 Year
  Sex: Female

DRUGS (6)
  1. FOSAMAX [Suspect]
     Indication: OSTEOPENIA
     Route: 048
     Dates: start: 20020725, end: 20080301
  2. FOSAMAX [Suspect]
     Indication: OSTEOPOROSIS
     Route: 048
     Dates: start: 20020725, end: 20080301
  3. FOSAMAX [Suspect]
     Route: 048
     Dates: start: 20080301, end: 20090401
  4. BUSPAR [Concomitant]
     Indication: ANXIETY
     Route: 065
     Dates: start: 19900101
  5. FOSAMAX PLUS D [Suspect]
     Route: 048
     Dates: start: 20050922
  6. BUSPAR [Concomitant]
     Indication: DEPRESSION
     Route: 065
     Dates: start: 19900101

REACTIONS (13)
  - FEMUR FRACTURE [None]
  - LOW TURNOVER OSTEOPATHY [None]
  - BLOOD CHOLESTEROL INCREASED [None]
  - HYPERLIPIDAEMIA [None]
  - BACK PAIN [None]
  - IMPAIRED HEALING [None]
  - JOINT EFFUSION [None]
  - CHOLECYSTITIS [None]
  - SEASONAL ALLERGY [None]
  - OVARIAN NEOPLASM [None]
  - CHOLELITHIASIS [None]
  - VITAMIN D DEFICIENCY [None]
  - HYPOKALAEMIA [None]
